FAERS Safety Report 5463651-1 (Version None)
Quarter: 2007Q3

REPORT INFORMATION
  Report Type: 
  Country: None (occurrence: None)
  Receive Date: 20070920
  Receipt Date: 20070913
  Transmission Date: 20080115
  Serious: Yes (Hospitalization, Other)
  Sender: FDA-Public Use
  Company Number: BE-ABBOTT-07P-013-0416932-00

PATIENT
  Sex: Male

DRUGS (5)
  1. HUMIRA [Suspect]
     Indication: RHEUMATOID ARTHRITIS
     Dates: start: 20060701
  2. HUMIRA [Suspect]
  3. METHOTREXATE [Concomitant]
     Indication: RHEUMATOID ARTHRITIS
  4. GLYBURIDE [Concomitant]
     Indication: TYPE 2 DIABETES MELLITUS
  5. METFORMIN HCL [Concomitant]
     Indication: TYPE 2 DIABETES MELLITUS

REACTIONS (11)
  - ABDOMINAL PAIN UPPER [None]
  - ADENOCARCINOMA [None]
  - ANOREXIA [None]
  - BENIGN PROSTATIC HYPERPLASIA [None]
  - DIVERTICULUM INTESTINAL [None]
  - GAMMA-GLUTAMYLTRANSFERASE INCREASED [None]
  - GASTRIC POLYPS [None]
  - GASTROINTESTINAL TRACT ADENOMA [None]
  - MASS [None]
  - REFLUX OESOPHAGITIS [None]
  - THALASSAEMIA [None]
